FAERS Safety Report 5845437-9 (Version None)
Quarter: 2008Q3

REPORT INFORMATION
  Report Type: 
  Country: None (occurrence: None)
  Receive Date: 20080814
  Receipt Date: 20080807
  Transmission Date: 20090109
  Serious: Yes (Other)
  Sender: FDA-Public Use
  Company Number: BR-ASTRAZENECA-2008UW15752

PATIENT
  Age: 69 Year
  Sex: Male

DRUGS (6)
  1. TENORETIC 100 [Suspect]
     Indication: HYPERTENSION
     Route: 048
     Dates: start: 19890101, end: 20030101
  2. SELOPRESS [Suspect]
     Indication: HYPERTENSION
     Dosage: 1/4 OF 100MG TABLET EVERY DAY
     Route: 048
     Dates: start: 20080701
  3. SELOPRESS [Suspect]
     Dosage: 1/2 OF 100MG TABLET EVERY DAY
     Route: 048
     Dates: start: 20030101, end: 20080701
  4. SELOPRESS [Suspect]
     Route: 048
     Dates: start: 20030101, end: 20030101
  5. DIOVAN HCT [Concomitant]
     Dosage: DOSE UNKNOWN, FREQUENCY DAILY
     Dates: start: 20030101
  6. ANLODIPINO [Concomitant]
     Route: 048
     Dates: start: 20030101

REACTIONS (3)
  - ANXIETY [None]
  - HEART RATE DECREASED [None]
  - HYPERTENSION [None]
